FAERS Safety Report 9143536 (Version 1)
Quarter: 2013Q1

REPORT INFORMATION
  Report Type: Spontaneous
  Country: HK (occurrence: HK)
  Receive Date: 20130306
  Receipt Date: 20130306
  Transmission Date: 20140127
  Serious: Yes (Other)
  Sender: FDA-Public Use
  Company Number: HK-ROCHE-1184888

PATIENT
  Age: 79 Year
  Sex: Male
  Weight: 51.9 kg

DRUGS (6)
  1. AVASTIN [Suspect]
     Indication: COLORECTAL CANCER METASTATIC
     Route: 042
     Dates: start: 20120417, end: 20120813
  2. AVASTIN [Suspect]
     Route: 042
     Dates: start: 20120813, end: 20121231
  3. FOLINIC ACID [Concomitant]
     Indication: COLORECTAL CANCER METASTATIC
     Route: 065
     Dates: end: 201207
  4. FLUOROURACIL [Concomitant]
     Indication: COLORECTAL CANCER METASTATIC
     Dosage: 500/700 MG
     Route: 042
     Dates: start: 20120418, end: 20120813
  5. OXALIPLATIN [Concomitant]
     Indication: COLORECTAL CANCER METASTATIC
     Route: 042
     Dates: start: 20120418, end: 20120813
  6. LEUCOVORIN [Concomitant]
     Indication: COLORECTAL CANCER METASTATIC
     Route: 042
     Dates: start: 20120418, end: 20120813

REACTIONS (4)
  - Tachypnoea [Not Recovered/Not Resolved]
  - Dysphonia [Not Recovered/Not Resolved]
  - Laryngitis [Not Recovered/Not Resolved]
  - Vocal cord atrophy [Not Recovered/Not Resolved]
